FAERS Safety Report 12513668 (Version 1)
Quarter: 2016Q2

REPORT INFORMATION
  Report Type: Spontaneous
  Country: US (occurrence: None)
  Receive Date: 20160629
  Receipt Date: 20160629
  Transmission Date: 20160815
  Serious: Yes (Hospitalization)
  Sender: FDA-Public Use
  Company Number: None

PATIENT
  Age: 73 Year
  Sex: Female
  Weight: 78.5 kg

DRUGS (1)
  1. ANASTRAZOLE, 1MG [Suspect]
     Active Substance: ANASTROZOLE
     Indication: BREAST CANCER
     Route: 048
     Dates: start: 20150601, end: 20160530

REACTIONS (2)
  - Therapy cessation [None]
  - Deep vein thrombosis [None]

NARRATIVE: CASE EVENT DATE: 20160530
